FAERS Safety Report 6443598-4 (Version None)
Quarter: 2009Q4

REPORT INFORMATION
  Report Type: 
  Country: None (occurrence: None)
  Receive Date: 20091117
  Receipt Date: 20091104
  Transmission Date: 20100525
  Serious: Yes (Hospitalization)
  Sender: FDA-Public Use
  Company Number: US-SANOFI-AVENTIS-2009SA001307

PATIENT
  Age: 48 Year
  Sex: Female

DRUGS (1)
  1. PLAVIX [Suspect]
     Route: 048
     Dates: start: 20080506

REACTIONS (3)
  - HICCUPS [None]
  - JOINT SWELLING [None]
  - PERIPHERAL COLDNESS [None]
